FAERS Safety Report 15770981 (Version 1)
Quarter: 2018Q4

REPORT INFORMATION
  Report Type: Spontaneous
  Country: US (occurrence: US)
  Receive Date: 20181228
  Receipt Date: 20181228
  Transmission Date: 20190205
  Serious: No
  Sender: FDA-Public Use
  Company Number: US-INDIVIOR LIMITED-INDV-113974-2018

PATIENT
  Sex: Male

DRUGS (2)
  1. SUBLOCADE [Suspect]
     Active Substance: BUPRENORPHINE
     Indication: DRUG USE DISORDER
     Dosage: 300 MG, QMO
     Route: 058
     Dates: start: 201808
  2. BUPRENORPHINE TABLET GENERIC [Suspect]
     Active Substance: BUPRENORPHINE
     Indication: DRUG DEPENDENCE
     Dosage: 24MG, DAILY
     Route: 065
     Dates: end: 2018

REACTIONS (4)
  - Substance abuse [Recovered/Resolved]
  - Injection site pain [Recovered/Resolved]
  - Intentional product use issue [Recovered/Resolved]
  - Drug withdrawal syndrome [Unknown]

NARRATIVE: CASE EVENT DATE: 2018
